FAERS Safety Report 12305342 (Version 1)
Quarter: 2016Q2

REPORT INFORMATION
  Report Type: Spontaneous
  Country: DE (occurrence: DE)
  Receive Date: 20160426
  Receipt Date: 20160426
  Transmission Date: 20160815
  Serious: Yes (Other)
  Sender: FDA-Public Use
  Company Number: DE-GLAXOSMITHKLINE-DE2016GSK051020

PATIENT
  Sex: Female

DRUGS (1)
  1. DICLOFENAC [Suspect]
     Active Substance: DICLOFENAC
     Indication: PRODUCT USED FOR UNKNOWN INDICATION
     Dosage: UNK
     Route: 048

REACTIONS (12)
  - Palpitations [Unknown]
  - Memory impairment [Unknown]
  - Tinnitus [Unknown]
  - Headache [Unknown]
  - Tachycardia [Unknown]
  - Respiratory distress [Unknown]
  - Chest pain [Unknown]
  - Tremor [Unknown]
  - Abdominal pain [Unknown]
  - Dizziness [Unknown]
  - Dysgeusia [Unknown]
  - Musculoskeletal stiffness [Unknown]
